FAERS Safety Report 6571976-1 (Version None)
Quarter: 2010Q1

REPORT INFORMATION
  Report Type: 
  Country: None (occurrence: None)
  Receive Date: 20100205
  Receipt Date: 20100127
  Transmission Date: 20100710
  Serious: Yes (Hospitalization)
  Sender: FDA-Public Use
  Company Number: FR-ABBOTT-10P-056-0622749-00

PATIENT
  Age: 44 Year
  Sex: Male

DRUGS (12)
  1. DEPAKENE [Suspect]
     Indication: EPILEPSY
     Route: 048
     Dates: start: 20090901
  2. DEPAKENE [Suspect]
  3. NEURONTIN [Concomitant]
     Indication: DRUG USE FOR UNKNOWN INDICATION
     Dates: start: 20091201
  4. NEURONTIN [Concomitant]
  5. AVLOCARDYL [Concomitant]
     Indication: DRUG USE FOR UNKNOWN INDICATION
  6. ESOMEPRAZOLE [Concomitant]
     Indication: DRUG USE FOR UNKNOWN INDICATION
  7. TRANXENE [Concomitant]
     Indication: DRUG USE FOR UNKNOWN INDICATION
  8. TRAMADOL [Concomitant]
     Indication: DRUG USE FOR UNKNOWN INDICATION
  9. METFORMIN HCL [Concomitant]
     Indication: DRUG USE FOR UNKNOWN INDICATION
  10. DIAMICRON [Concomitant]
     Indication: DRUG USE FOR UNKNOWN INDICATION
  11. KARDEGIC [Concomitant]
     Indication: DRUG USE FOR UNKNOWN INDICATION
  12. PERINDOPRIL [Concomitant]
     Indication: DRUG USE FOR UNKNOWN INDICATION

REACTIONS (4)
  - AMMONIA INCREASED [None]
  - CEREBELLAR SYNDROME [None]
  - DISORIENTATION [None]
  - ENCEPHALOPATHY [None]
